FAERS Safety Report 5067817-4 (Version None)
Quarter: 2006Q3

REPORT INFORMATION
  Report Type: 
  Country: None (occurrence: None)
  Receive Date: 20060802
  Receipt Date: 20060713
  Transmission Date: 20061208
  Serious: Yes (Death)
  Sender: FDA-Public Use
  Company Number: 2006AP03232

PATIENT
  Age: 68 Year
  Sex: Female
  Weight: 50 kg

DRUGS (17)
  1. MEROPENEM [Suspect]
     Indication: PYREXIA
     Route: 041
     Dates: start: 20060519, end: 20060519
  2. MEROPENEM [Suspect]
     Route: 041
     Dates: start: 20060508, end: 20060515
  3. GASTROM [Concomitant]
     Indication: GASTRITIS
     Route: 048
     Dates: start: 20030701
  4. GLAKAY [Concomitant]
     Indication: OSTEOPOROSIS
     Route: 048
     Dates: start: 20030701
  5. CALTAN [Concomitant]
     Indication: HYPERPHOSPHATAEMIA
     Route: 048
     Dates: start: 20030701
  6. DIOVAN [Concomitant]
     Indication: HYPERTENSION
     Route: 048
     Dates: start: 20030701
  7. DEPAS [Concomitant]
     Indication: INSOMNIA
     Route: 048
     Dates: start: 20030701
  8. MEVALOTIN [Concomitant]
     Indication: HYPERLIPIDAEMIA
     Route: 048
     Dates: start: 20040121
  9. PRERAN [Concomitant]
     Indication: HYPERTENSION
     Route: 048
     Dates: start: 20041110
  10. ARGAMATE [Concomitant]
     Indication: HYPERKALAEMIA
     Route: 048
     Dates: start: 20050316, end: 20060516
  11. ATELEC [Concomitant]
     Indication: HYPERTENSION
     Route: 048
     Dates: start: 20050720
  12. MIYA BM [Concomitant]
     Indication: DIARRHOEA
     Route: 048
     Dates: start: 20060428
  13. ALLOID G [Concomitant]
     Indication: GASTRITIS
     Route: 048
     Dates: start: 20060509
  14. PARIET [Concomitant]
     Indication: REFLUX OESOPHAGITIS
     Route: 048
     Dates: start: 20060509
  15. BACTA [Concomitant]
     Indication: PNEUMOCYSTIS JIROVECI PNEUMONIA
     Route: 048
     Dates: start: 20060509
  16. PREDONINE [Concomitant]
     Indication: NEPHRITIS
     Route: 048
     Dates: start: 20060512
  17. HALCYON [Concomitant]
     Indication: INSOMNIA
     Route: 048
     Dates: start: 20060515

REACTIONS (2)
  - ANAPHYLACTIC SHOCK [None]
  - CARDIO-RESPIRATORY ARREST [None]
